FAERS Safety Report 5240658-0 (Version None)
Quarter: 2007Q1

REPORT INFORMATION
  Report Type: 
  Country: None (occurrence: None)
  Receive Date: 20070219
  Receipt Date: 20070208
  Transmission Date: 20070707
  Serious: Yes (Other)
  Sender: FDA-Public Use
  Company Number: 2007SE00806

PATIENT
  Sex: Male

DRUGS (2)
  1. CASODEX [Suspect]
     Indication: PROSTATE CANCER METASTATIC
     Route: 048
  2. ENANTONE [Suspect]
     Indication: PROSTATE CANCER METASTATIC
     Dosage: TRIMESTER
     Route: 030

REACTIONS (1)
  - THROMBOCYTOPENIA [None]
